FAERS Safety Report 8838762 (Version 1)
Quarter: 2012Q4

REPORT INFORMATION
  Report Type: Report from Study
  Country: JP (occurrence: JP)
  Receive Date: 20121012
  Receipt Date: 20121012
  Transmission Date: 20130627
  Serious: Yes (Hospitalization, Other)
  Sender: FDA-Public Use
  Company Number: JP-009507513-2012SP011431

PATIENT
  Age: 59 Year
  Sex: Male
  Weight: 67 kg

DRUGS (12)
  1. PEGINTERFERON ALFA-2B [Suspect]
     Indication: HEPATITIS C
     Dosage: 1.5 microgram per kilogram, QW
     Route: 058
     Dates: start: 20120214, end: 20120217
  2. PEGINTERFERON ALFA-2B [Suspect]
     Dosage: 1.5 microgram per kilogram, QW
     Route: 058
     Dates: start: 20120221
  3. REBETOL [Suspect]
     Indication: HEPATITIS C
     Dosage: 800 mg, QD
     Route: 048
     Dates: start: 20120214, end: 20120217
  4. REBETOL [Suspect]
     Dosage: 800 mg, QD
     Route: 048
     Dates: start: 20120221, end: 20120305
  5. REBETOL [Suspect]
     Dosage: 400 mg, QD
     Route: 048
     Dates: start: 20120306, end: 20120430
  6. REBETOL [Suspect]
     Dosage: 600 mg, QD
     Route: 048
     Dates: start: 20120501, end: 20120604
  7. REBETOL [Suspect]
     Dosage: 800 mg, qd
     Route: 048
     Dates: start: 20120605
  8. TELAVIC [Suspect]
     Indication: HEPATITIS C
     Dosage: 2250 milligrams, QD
     Route: 048
     Dates: start: 20120214, end: 20120217
  9. TELAVIC [Suspect]
     Dosage: 1000 milligrams, QD
     Route: 048
     Dates: start: 20120228, end: 20120301
  10. TELAVIC [Suspect]
     Dosage: 1500 milligrams, qd
     Route: 048
     Dates: start: 20120302, end: 20120416
  11. TELAVIC [Suspect]
     Dosage: 2000 milligrams, QD
     Route: 048
     Dates: start: 20120417
  12. JANUVIA TABLETS 50MG [Concomitant]
     Indication: DIABETES MELLITUS
     Dosage: 50 mg, qd
     Route: 048

REACTIONS (2)
  - Hyperuricaemia [Recovered/Resolved]
  - Renal failure acute [Recovering/Resolving]
